FAERS Safety Report 14165333 (Version 1)
Quarter: 2017Q4

REPORT INFORMATION
  Report Type: Spontaneous
  Country: TR (occurrence: TR)
  Receive Date: 20171107
  Receipt Date: 20171107
  Transmission Date: 20180321
  Serious: Yes (Other)
  Sender: FDA-Public Use
  Company Number: TR-GLAXOSMITHKLINE-TR2017GSK168191

PATIENT
  Age: 28 Year
  Sex: Female

DRUGS (1)
  1. CLINDOXYL [Suspect]
     Active Substance: BENZOYL PEROXIDE\CLINDAMYCIN PHOSPHATE
     Indication: ACNE
     Dosage: UNK

REACTIONS (9)
  - Stomatitis [Unknown]
  - Pyrexia [Unknown]
  - Mouth swelling [Unknown]
  - Rhinorrhoea [Unknown]
  - Erythema [Unknown]
  - Asthenia [Unknown]
  - Tonsillar inflammation [Unknown]
  - Cough [Unknown]
  - Oral disorder [Unknown]

NARRATIVE: CASE EVENT DATE: 20171010
